FAERS Safety Report 6438283-9 (Version None)
Quarter: 2009Q4

REPORT INFORMATION
  Report Type: 
  Country: None (occurrence: None)
  Receive Date: 20091112
  Receipt Date: 20091029
  Transmission Date: 20100525
  Serious: Yes (Disabling)
  Sender: FDA-Public Use
  Company Number: PHHY2009JP47394

PATIENT
  Age: 80 Year
  Sex: Female

DRUGS (7)
  1. ZOMETA [Suspect]
     Indication: METASTASES TO BONE
     Dosage: 4 MG PER ADMINISTRATION
     Route: 042
     Dates: start: 20070101, end: 20090701
  2. BISPHONAL [Suspect]
     Dosage: UNK
     Route: 042
     Dates: end: 20070101
  3. ANTHRACYCLINES [Concomitant]
  4. OTHER ANTINEOPLASTIC AGENTS [Concomitant]
  5. NAVELBINE [Concomitant]
     Route: 042
  6. TAMOXIFEN CITRATE [Concomitant]
  7. FARESTON [Concomitant]
     Route: 048

REACTIONS (1)
  - OSTEOMYELITIS [None]
